FAERS Safety Report 7244678-6 (Version None)
Quarter: 2011Q1

REPORT INFORMATION
  Report Type: 
  Country: None (occurrence: None)
  Receive Date: 20110125
  Receipt Date: 20101112
  Transmission Date: 20110831
  Serious: No
  Sender: FDA-Public Use
  Company Number: US-MYLANLABS-2010S1018950

PATIENT
  Age: 67 Year
  Sex: Female

DRUGS (6)
  1. CHLORDIAZEPOXIDE AND AMITRIPTYLINE HYDROCHLORIDE [Suspect]
     Route: 048
     Dates: start: 19860201, end: 20101009
  2. LISINOPRIL [Concomitant]
     Indication: BLOOD PRESSURE
     Route: 048
     Dates: start: 20100501
  3. ZANTAC [Concomitant]
     Indication: GASTROOESOPHAGEAL REFLUX DISEASE
     Dates: start: 19860201
  4. CHLORDIAZEPOXIDE AND AMITRIPTYLINE HYDROCHLORIDE [Suspect]
     Indication: ANXIETY
     Route: 048
     Dates: start: 19860201, end: 20101009
  5. CHLORDIAZEPOXIDE AND AMITRIPTYLINE HYDROCHLORIDE [Suspect]
     Route: 048
     Dates: start: 19860201, end: 20101009
  6. CHLORDIAZEPOXIDE AND AMITRIPTYLINE HYDROCHLORIDE [Suspect]
     Indication: GASTRITIS
     Route: 048
     Dates: start: 19860201, end: 20101009

REACTIONS (2)
  - ABNORMAL BEHAVIOUR [None]
  - HYPERSOMNIA [None]
